FAERS Safety Report 16064098 (Version 1)
Quarter: 2019Q1

REPORT INFORMATION
  Report Type: Report from Study
  Country: ES (occurrence: ES)
  Receive Date: 20190312
  Receipt Date: 20190312
  Transmission Date: 20190418
  Serious: Yes (Other)
  Sender: FDA-Public Use
  Company Number: ES-PFIZER INC-2019102572

PATIENT
  Age: 7 Year
  Sex: Male

DRUGS (5)
  1. FLUDARABINE PHOSPHATE. [Interacting]
     Active Substance: FLUDARABINE PHOSPHATE
     Indication: STEM CELL TRANSPLANT
     Dosage: 43 MG, DAILY
     Route: 042
     Dates: start: 20170729, end: 20170731
  2. METHYLPREDNISOLONE SODIUM SUCCINATE. [Suspect]
     Active Substance: METHYLPREDNISOLONE SODIUM SUCCINATE
     Indication: STEM CELL TRANSPLANT
     Dosage: 11 MG, 2X/DAY
     Route: 042
     Dates: start: 20170810
  3. CICLOSPORINE [Interacting]
     Active Substance: CYCLOSPORINE
     Indication: STEM CELL TRANSPLANT
     Dosage: 40 MG, 2X/DAY
     Route: 042
     Dates: start: 20170801
  4. THIOTEPA. [Interacting]
     Active Substance: THIOTEPA
     Indication: STEM CELL TRANSPLANT
     Dosage: 112.5 MG, DAILY
     Route: 042
     Dates: start: 20170727, end: 20170728
  5. BUSULFAN. [Interacting]
     Active Substance: BUSULFAN
     Indication: STEM CELL TRANSPLANT
     Dosage: 99 MG, DAILY
     Route: 042
     Dates: start: 20170729, end: 20170731

REACTIONS (3)
  - Rhinovirus infection [Recovered/Resolved]
  - Drug interaction [Recovered/Resolved]
  - Stomatitis [Recovered/Resolved]

NARRATIVE: CASE EVENT DATE: 20170812
